FAERS Safety Report 8288493-3 (Version None)
Quarter: 2012Q2

REPORT INFORMATION
  Report Type: 
  Country: None (occurrence: None)
  Receive Date: 20120416
  Receipt Date: 20120410
  Transmission Date: 20120825
  Serious: Yes (Death, Hospitalization, Other)
  Sender: FDA-Public Use
  Company Number: JP-ROCHE-773112

PATIENT
  Sex: Female

DRUGS (14)
  1. MYCOPHENOLATE MOFETIL (CELLCEPT) [Suspect]
     Indication: PROPHYLAXIS AGAINST TRANSPLANT REJECTION
     Route: 048
     Dates: start: 20070224, end: 20070823
  2. TACROLIMUS [Suspect]
     Indication: PROPHYLAXIS AGAINST TRANSPLANT REJECTION
     Dosage: FORM: PERORAL AGENT
     Route: 048
     Dates: start: 20070224, end: 20070920
  3. SLOW-K [Concomitant]
     Indication: PROPHYLAXIS
     Route: 048
     Dates: end: 20071030
  4. ALENDRONATE SODIUM [Concomitant]
     Indication: PROPHYLAXIS
     Route: 048
     Dates: end: 20071030
  5. INTRON [Concomitant]
     Dosage: 100-300MIU
     Route: 030
  6. ADALAT CC [Concomitant]
     Indication: PROPHYLAXIS
     Route: 048
     Dates: end: 20071030
  7. METHYLCOBALAMIN [Concomitant]
     Indication: PROPHYLAXIS
     Dosage: POR
     Route: 048
     Dates: end: 20071030
  8. METHYLPREDNISOLONE [Suspect]
     Indication: PROPHYLAXIS AGAINST TRANSPLANT REJECTION
     Dosage: DOSE FORM: PERORAL AGENT, 8 TO 10 MG
     Route: 048
  9. ZOLPIDEM [Concomitant]
     Indication: PROPHYLAXIS
     Dosage: DOSAGE IS UNCERTAIN, POR
     Route: 048
  10. CYCLOSPORINE [Suspect]
     Indication: PROPHYLAXIS AGAINST TRANSPLANT REJECTION
     Dosage: FORM: PERORAL AGENT, 30-50 MG
     Route: 048
     Dates: start: 20070921, end: 20071104
  11. MYCOPHENOLATE MOFETIL (CELLCEPT) [Suspect]
     Route: 048
     Dates: start: 20070824, end: 20071031
  12. PEG-INTRON [Concomitant]
     Indication: HEPATITIS C
     Route: 058
     Dates: start: 20070403, end: 20070915
  13. OMEPRAZOLE [Concomitant]
     Indication: PROPHYLAXIS
     Route: 048
     Dates: end: 20071030
  14. LAC-B [Concomitant]
     Indication: PROPHYLAXIS
     Dosage: POR
     Route: 048
     Dates: end: 20071030

REACTIONS (6)
  - VIRAL MYOCARDITIS [None]
  - PANCYTOPENIA [None]
  - HEPATITIS C [None]
  - ENTEROBACTER INFECTION [None]
  - CYTOMEGALOVIRUS INFECTION [None]
  - STAPHYLOCOCCAL INFECTION [None]
